FAERS Safety Report 7516600-6 (Version None)
Quarter: 2011Q2

REPORT INFORMATION
  Report Type: 
  Country: None (occurrence: None)
  Receive Date: 20110601
  Receipt Date: 20110527
  Transmission Date: 20111010
  Serious: Yes (Death, Other)
  Sender: FDA-Public Use
  Company Number: TH-GENZYME-CERZ-1002090

PATIENT
  Sex: Male
  Weight: 42 kg

DRUGS (3)
  1. CLONAZEPAM [Concomitant]
     Indication: EPILEPSY
     Dosage: 0.5 MG, TID
     Route: 065
     Dates: start: 20080708, end: 20110122
  2. CEREZYME [Suspect]
     Indication: GAUCHER'S DISEASE
     Dosage: 60 U/KG, Q2W
     Route: 042
     Dates: start: 20041118, end: 20110122
  3. KEPPRA [Concomitant]
     Indication: EPILEPSY
     Dosage: 500 MG, BID
     Route: 065
     Dates: start: 20080708, end: 20110122

REACTIONS (3)
  - CEREBELLAR ATAXIA [None]
  - MYOCLONIC EPILEPSY [None]
  - PNEUMONIA [None]
